FAERS Safety Report 11734158 (Version 1)
Quarter: 2015Q4

REPORT INFORMATION
  Report Type: Spontaneous
  Country: IT (occurrence: IT)
  Receive Date: 20151113
  Receipt Date: 20151113
  Transmission Date: 20160304
  Serious: Yes (Hospitalization)
  Sender: FDA-Public Use
  Company Number: IT-WATSON-2015-18977

PATIENT
  Age: 47 Year
  Sex: Female

DRUGS (2)
  1. INSULIN [Suspect]
     Active Substance: INSULIN NOS
     Indication: INTENTIONAL SELF-INJURY
     Dosage: 30 IU, TOTAL
     Route: 058
     Dates: start: 20150807, end: 20150807
  2. LORAZEPAM. [Suspect]
     Active Substance: LORAZEPAM
     Indication: INTENTIONAL SELF-INJURY
     Dosage: 25 DF, TOTAL
     Route: 048
     Dates: start: 20150807, end: 20150807

REACTIONS (4)
  - Hypoglycaemia [Unknown]
  - Sopor [Unknown]
  - Drug abuse [Unknown]
  - Intentional self-injury [Unknown]

NARRATIVE: CASE EVENT DATE: 20150807
